FAERS Safety Report 12949708 (Version 1)
Quarter: 2016Q4

REPORT INFORMATION
  Report Type: Spontaneous
  Country: US (occurrence: US)
  Receive Date: 20161116
  Receipt Date: 20161116
  Transmission Date: 20170207
  Serious: Yes (Disabling, Other)
  Sender: FDA-Public Use
  Company Number: None

PATIENT
  Age: 44 Year
  Sex: Female
  Weight: 64.3 kg

DRUGS (2)
  1. ATIVAN [Concomitant]
     Active Substance: LORAZEPAM
  2. BOTOX [Suspect]
     Active Substance: ONABOTULINUMTOXINA
     Indication: SKIN WRINKLING
     Dosage: ?          QUANTITY:28 INJECTION(S);OTHER FREQUENCY:ONE TIME INJECTION;?
     Route: 042
     Dates: start: 20160723, end: 20160723

REACTIONS (6)
  - Hypoaesthesia oral [None]
  - Anxiety [None]
  - Muscular weakness [None]
  - Botulism [None]
  - Vision blurred [None]
  - Palpitations [None]

NARRATIVE: CASE EVENT DATE: 20160723
